FAERS Safety Report 5625068-6 (Version None)
Quarter: 2008Q1

REPORT INFORMATION
  Report Type: 
  Country: None (occurrence: None)
  Receive Date: 20080213
  Receipt Date: 20080131
  Transmission Date: 20080703
  Serious: Yes (Other)
  Sender: FDA-Public Use
  Company Number: DE-GILEAD-2008-0015168

PATIENT
  Sex: Male

DRUGS (3)
  1. TRUVADA [Suspect]
     Indication: HIV INFECTION
  2. VIRAMUNE [Concomitant]
     Indication: HIV INFECTION
  3. CHOLESTYRAMINE [Concomitant]

REACTIONS (3)
  - AIDS ENCEPHALOPATHY [None]
  - DIARRHOEA [None]
  - PSYCHIATRIC SYMPTOM [None]
